FAERS Safety Report 9828287 (Version 2)
Quarter: 2014Q1

REPORT INFORMATION
  Report Type: Spontaneous
  Country: US (occurrence: US)
  Receive Date: 20140117
  Receipt Date: 20140117
  Transmission Date: 20141002
  Serious: Yes (Hospitalization)
  Sender: FDA-Public Use
  Company Number: US-BRISTOL-MYERS SQUIBB COMPANY-19927409

PATIENT
  Age: 61 Year
  Sex: Female

DRUGS (3)
  1. BYDUREON [Suspect]
     Dosage: LAST DOSE:09DEC13
     Dates: start: 20131209, end: 20131209
  2. METFORMIN [Concomitant]
  3. HUMALOG [Concomitant]

REACTIONS (7)
  - Tremor [Unknown]
  - Convulsion [Unknown]
  - Urinary tract infection [Unknown]
  - Hypotension [Unknown]
  - Nausea [Unknown]
  - Abdominal pain [Recovered/Resolved]
  - Diarrhoea [Unknown]
